FAERS Safety Report 7210126-5 (Version None)
Quarter: 2011Q1

REPORT INFORMATION
  Report Type: 
  Country: None (occurrence: None)
  Receive Date: 20110105
  Receipt Date: 20101221
  Transmission Date: 20110831
  Serious: Yes (Hospitalization)
  Sender: FDA-Public Use
  Company Number: JP-SANOFI-AVENTIS-2010SA077916

PATIENT
  Age: 63 Year
  Sex: Male

DRUGS (2)
  1. ENDOXAN [Suspect]
     Route: 048
     Dates: start: 20101208, end: 20101212
  2. FLUDARABINE PHOSPHATE [Suspect]
     Route: 048
     Dates: start: 20101208, end: 20101212

REACTIONS (1)
  - HEPATIC FUNCTION ABNORMAL [None]
